FAERS Safety Report 6996476-6 (Version None)
Quarter: 2010Q3

REPORT INFORMATION
  Report Type: 
  Country: None (occurrence: None)
  Receive Date: 20100918
  Receipt Date: 20090306
  Transmission Date: 20110219
  Serious: No
  Sender: FDA-Public Use
  Company Number: US-WYE-H08492109

PATIENT
  Sex: Female

DRUGS (2)
  1. EFFEXOR XR [Suspect]
     Route: 048
     Dates: end: 20090301
  2. EFFEXOR XR [Suspect]
     Route: 048
     Dates: start: 20090301

REACTIONS (5)
  - ANXIETY [None]
  - DRUG WITHDRAWAL SYNDROME [None]
  - PANIC ATTACK [None]
  - RESTLESSNESS [None]
  - TACHYPHRENIA [None]
